FAERS Safety Report 4913526-9 (Version None)
Quarter: 2006Q1

REPORT INFORMATION
  Report Type: 
  Country: None (occurrence: None)
  Receive Date: 20060210
  Receipt Date: 20050407
  Transmission Date: 20060701
  Serious: Yes (Hospitalization, Other)
  Sender: FDA-Public Use
  Company Number: 2005036911

PATIENT
  Age: 19 Year
  Sex: Female
  Weight: 52 kg

DRUGS (18)
  1. LINEZOLID                       SOLUTION, STERILE (LINEZOLID) [Suspect]
     Indication: PNEUMONIA
     Dosage: 1200 MG (600 MG, BID), ORAL
     Route: 048
     Dates: start: 20050131, end: 20050206
  2. LINEZOLID                       SOLUTION, STERILE (LINEZOLID) [Suspect]
     Indication: SEPSIS
     Dosage: 1200 MG (600 MG, BID), ORAL
     Route: 048
     Dates: start: 20050131, end: 20050206
  3. MEROPENEM (MEROPENEM) [Concomitant]
  4. VANCOMYCIN [Concomitant]
  5. OMEPRAZOLE [Concomitant]
  6. PIRACETAM (PIRACETAM) [Concomitant]
  7. BROMHEXINE HYDROCHLORIDE (BROMHEXINE HYDROCHLORIDE) [Concomitant]
  8. DESMOPRESSIN ACETATE (DESMOPRESSIN ACETATE) [Concomitant]
  9. TETRAZEPAM (TETRAZEPAM) [Concomitant]
  10. METOCLOPRAMIDE HYDROCHLORIDE [Concomitant]
  11. NUTRITIONAL SUPPLEMENT (GENERAL NUTRIENTS) [Concomitant]
  12. POTASSIUM CHLORIDE [Concomitant]
  13. CILASTATIN SODIUM W/ IMIPENEM (CILASTATIN SODIUM, IMIPENEM) [Concomitant]
  14. INSULIN [Concomitant]
  15. VITAMIN B1 TAB [Concomitant]
  16. VITAMIN B6 (VITAMIN B6) [Concomitant]
  17. VITAMIN C (VITAMIN C) [Concomitant]
  18. NIFUROXAZIDE (NIFUROXAZIDE) [Concomitant]

REACTIONS (11)
  - ANAEMIA [None]
  - BLOOD SODIUM DECREASED [None]
  - CLOSTRIDIAL INFECTION [None]
  - HEPATOSPLENOMEGALY [None]
  - LYMPHOCYTE PERCENTAGE DECREASED [None]
  - NEUTROPHIL PERCENTAGE INCREASED [None]
  - PROTEIN TOTAL DECREASED [None]
  - PROTHROMBIN TIME PROLONGED [None]
  - SPASTIC PARALYSIS [None]
  - THROMBOCYTOPENIA [None]
  - URINARY TRACT INFECTION [None]
